FAERS Safety Report 7203040-2 (Version None)
Quarter: 2010Q4

REPORT INFORMATION
  Report Type: 
  Country: None (occurrence: None)
  Receive Date: 20101229
  Receipt Date: 20101221
  Transmission Date: 20110411
  Serious: Yes (Other)
  Sender: FDA-Public Use
  Company Number: CH-GENENTECH-311672

PATIENT
  Sex: Male

DRUGS (5)
  1. MABTHERA [Suspect]
     Indication: MANTLE CELL LYMPHOMA
     Dosage: 375 MG/M2, UNK
     Route: 042
     Dates: start: 20100101
  2. CYCLOPHOSPHAMIDE [Concomitant]
     Indication: MANTLE CELL LYMPHOMA
     Dosage: UNK
     Dates: start: 20100101, end: 20100101
  3. PREDNISONE [Concomitant]
     Indication: MANTLE CELL LYMPHOMA
     Dosage: UNK
     Dates: start: 20100101, end: 20100101
  4. VINCRISTINE [Concomitant]
     Indication: MANTLE CELL LYMPHOMA
     Dosage: UNK
     Dates: start: 20100101, end: 20100101
  5. BENDAMUSTINE [Concomitant]
     Indication: MANTLE CELL LYMPHOMA
     Dosage: UNK
     Dates: start: 20100101

REACTIONS (1)
  - MYOCARDIAL INFARCTION [None]
